FAERS Safety Report 4425137-2 (Version None)
Quarter: 2004Q3

REPORT INFORMATION
  Report Type: 
  Country: None (occurrence: None)
  Receive Date: 20040811
  Receipt Date: 20040811
  Transmission Date: 20050211
  Serious: No
  Sender: FDA-Public Use
  Company Number: None

PATIENT
  Age: 78 Year
  Sex: Male
  Weight: 67 kg

DRUGS (2)
  1. DIGOXIN [Suspect]
     Indication: ATRIAL FIBRILLATION
     Dosage: 0.25 MG QD ORAL
     Route: 048
     Dates: start: 20040204, end: 20040510
  2. WARFARIN SODIUM [Suspect]
     Dosage: 2 MG QHS ORAL
     Route: 048
     Dates: start: 20040204, end: 20040510

REACTIONS (2)
  - INTERNATIONAL NORMALISED RATIO INCREASED [None]
  - THERAPEUTIC AGENT TOXICITY [None]
